FAERS Safety Report 8490005-6 (Version None)
Quarter: 2012Q2

REPORT INFORMATION
  Report Type: 
  Country: None (occurrence: None)
  Receive Date: 20120626
  Receipt Date: 20120615
  Transmission Date: 20120825
  Serious: Yes (Death, Hospitalization)
  Sender: FDA-Public Use
  Company Number: 130025-2

PATIENT
  Age: 62 Year
  Sex: Male
  Weight: 69 kg

DRUGS (12)
  1. LEUCOVORIN CALCIUM [Suspect]
     Indication: COLORECTAL CANCER METASTATIC
     Dates: start: 20111024, end: 20120116
  2. HEPARIN [Concomitant]
  3. SODIUM CHLORIDE [Concomitant]
  4. VITAMIN B12 [Concomitant]
  5. ASPIRIN [Concomitant]
  6. ACETAMINOPHEN [Concomitant]
  7. SENOKOT (SENNA ALEXANDRINA) [Concomitant]
  8. PYRIDOXINE HYDROCHLORIDE [Concomitant]
  9. FERROUS SULFATE TAB [Concomitant]
  10. GABAPENTIN [Concomitant]
  11. MEGESTROL ACETATE [Concomitant]
  12. ONDANSETRON [Concomitant]

REACTIONS (15)
  - FEELING ABNORMAL [None]
  - ELECTROCARDIOGRAM ST SEGMENT ELEVATION [None]
  - PLEURAL EFFUSION [None]
  - METASTASES TO MENINGES [None]
  - URINARY INCONTINENCE [None]
  - ENCEPHALOPATHY [None]
  - ASTHENIA [None]
  - BACK PAIN [None]
  - CARDIOMEGALY [None]
  - DIZZINESS [None]
  - TACHYPNOEA [None]
  - RESPIRATORY DISORDER [None]
  - SPINAL CORD COMPRESSION [None]
  - DISEASE PROGRESSION [None]
  - LYMPHADENOPATHY [None]
